FAERS Safety Report 24437443 (Version 2)
Quarter: 2025Q1

REPORT INFORMATION
  Report Type: Spontaneous
  Country: US (occurrence: US)
  Receive Date: 20241015
  Receipt Date: 20250110
  Transmission Date: 20250409
  Serious: Yes (Other)
  Sender: SANOFI AVENTIS
  Company Number: US-SA-2024SA295698

PATIENT
  Sex: Female

DRUGS (3)
  1. DUPIXENT [Suspect]
     Active Substance: DUPILUMAB
     Indication: Asthma
     Dosage: 300 MG, QOW
     Route: 058
     Dates: start: 202212
  2. NUZYRA [Concomitant]
     Active Substance: OMADACYCLINE
     Indication: Asthma
  3. TOBRAMYCIN [Concomitant]
     Active Substance: TOBRAMYCIN

REACTIONS (1)
  - Mycobacterium avium complex infection [Not Recovered/Not Resolved]
